FAERS Safety Report 9500935 (Version 1)
Quarter: 2013Q1

REPORT INFORMATION
  Report Type: Spontaneous
  Country: US (occurrence: None)
  Receive Date: 20130116
  Receipt Date: 20130116
  Transmission Date: 20140127
  Serious: Yes (Other)
  Sender: FDA-Public Use
  Company Number: CTI_01475_2012

PATIENT
  Age: 1 Day
  Sex: Female

DRUGS (1)
  1. CUROSURF [Suspect]
     Indication: PRODUCT USED FOR UNKNOWN INDICATION
     Dosage: 2 CC (UNKNOWN FREQUENCY)
     Dates: start: 20120725, end: 20120725

REACTIONS (1)
  - Interstitial lung disease [None]
